FAERS Safety Report 25058443 (Version 2)
Quarter: 2025Q2

REPORT INFORMATION
  Report Type: Spontaneous
  Country: JP (occurrence: JP)
  Receive Date: 20250310
  Receipt Date: 20250403
  Transmission Date: 20250716
  Serious: Yes (Hospitalization)
  Sender: MERCK SHARP AND DOHME
  Company Number: JP-009507513-2260878

PATIENT
  Age: 7 Decade
  Sex: Female
  Weight: 53.2 kg

DRUGS (1)
  1. PEMBROLIZUMAB [Suspect]
     Active Substance: PEMBROLIZUMAB
     Indication: Breast cancer female
     Dosage: 200MG Q3W

REACTIONS (4)
  - Drug eruption [Unknown]
  - Pyrexia [Unknown]
  - Thrombocytopenia [Unknown]
  - Drug interaction [Unknown]
